FAERS Safety Report 5443701-9 (Version None)
Quarter: 2007Q3

REPORT INFORMATION
  Report Type: 
  Country: None (occurrence: None)
  Receive Date: 20070905
  Receipt Date: 20070801
  Transmission Date: 20080115
  Serious: Yes (Other)
  Sender: FDA-Public Use
  Company Number: JP-PFIZER INC-2007057594

PATIENT
  Sex: Female
  Weight: 53.4 kg

DRUGS (4)
  1. NORVASC [Suspect]
     Indication: HYPERTENSION
     Route: 048
     Dates: start: 20040311, end: 20070531
  2. DOXAZOSIN MESYLATE [Suspect]
     Indication: HYPERTENSION
     Route: 048
     Dates: start: 20031001, end: 20070531
  3. COMELIAN [Suspect]
     Indication: PLATELET AGGREGATION INHIBITION
     Route: 048
     Dates: start: 20031001, end: 20070531
  4. CANDESARTAN CILEXETIL [Suspect]
     Indication: HYPERTENSION
     Route: 048
     Dates: start: 20030904, end: 20070531

REACTIONS (2)
  - AGRANULOCYTOSIS [None]
  - THROMBOCYTOPENIA [None]
